FAERS Safety Report 8168113 (Version 7)
Quarter: 2014Q1

REPORT INFORMATION
  Report Type: Spontaneous
  Country: US (occurrence: US)
  Receive Date: 20111004
  Receipt Date: 20140113
  Transmission Date: 20141002
  Serious: Yes (Hospitalization)
  Sender: FDA-Public Use
  Company Number: US-GLAXOSMITHKLINE-A0835757A

PATIENT
  Age: 66 Year
  Sex: Female
  Weight: 73.6 kg

DRUGS (2)
  1. AVANDIA [Suspect]
     Indication: TYPE 2 DIABETES MELLITUS
     Dosage: 4MG TWICE PER DAY
     Route: 048
     Dates: start: 20050603, end: 2006
  2. AVANDAMET [Suspect]
     Indication: TYPE 2 DIABETES MELLITUS
     Route: 048
     Dates: start: 20040809, end: 20071102

REACTIONS (5)
  - Cardiac failure congestive [Not Recovered/Not Resolved]
  - Cardiomyopathy [Unknown]
  - Chest pain [Unknown]
  - Coronary artery disease [Unknown]
  - Dyspnoea [Unknown]
